FAERS Safety Report 20998126 (Version 1)
Quarter: 2022Q2

REPORT INFORMATION
  Report Type: Spontaneous
  Country: US (occurrence: US)
  Receive Date: 20220623
  Receipt Date: 20220623
  Transmission Date: 20220720
  Serious: No
  Sender: FDA-Public Use
  Company Number: US-BRISTOL-MYERS SQUIBB COMPANY-2022-057782

PATIENT
  Age: 53 Year
  Sex: Male

DRUGS (1)
  1. REVLIMID [Suspect]
     Active Substance: LENALIDOMIDE
     Indication: Plasma cell myeloma
     Dosage: FREQUENCY:  FOR 21 DAYS OUT OF 28 DAYS
     Route: 048
     Dates: start: 20210703

REACTIONS (4)
  - Red blood cell count decreased [Unknown]
  - Dry skin [Unknown]
  - Haemoglobin decreased [Unknown]
  - Fatigue [Unknown]
